FAERS Safety Report 23512502 (Version 4)
Quarter: 2024Q4

REPORT INFORMATION
  Report Type: Spontaneous
  Country: JP (occurrence: JP)
  Receive Date: 20240212
  Receipt Date: 20241015
  Transmission Date: 20250115
  Serious: Yes (Life-Threatening, Other)
  Sender: NX DEVELOPMENT CORPORATION
  Company Number: JP-sbiph-S000173110P

PATIENT
  Age: 75 Year
  Sex: Female
  Weight: 46.6 kg

DRUGS (1)
  1. AMINOLEVULINIC ACID HYDROCHLORIDE [Suspect]
     Active Substance: AMINOLEVULINIC ACID HYDROCHLORIDE
     Indication: Photodynamic diagnostic procedure
     Route: 048
     Dates: start: 20240202, end: 20240202

REACTIONS (4)
  - Hypotension [Unknown]
  - Cardiac arrest [Recovered/Resolved]
  - Vomiting [Unknown]
  - Loss of consciousness [Unknown]

NARRATIVE: CASE EVENT DATE: 20240202
